FAERS Safety Report 5633539-1 (Version None)
Quarter: 2008Q1

REPORT INFORMATION
  Report Type: 
  Country: None (occurrence: None)
  Receive Date: 20080131
  Receipt Date: 20071113
  Transmission Date: 20080703
  Serious: No
  Sender: FDA-Public Use
  Company Number: 163-21880-07110886

PATIENT
  Age: 48 Year
  Sex: Female

DRUGS (5)
  1. REVLIMID [Suspect]
     Indication: MULTIPLE MYELOMA
     Dosage: 25 MG, DAILY FOR 21 DAYS, ORAL
     Route: 048
     Dates: start: 20071106
  2. DIOVAN [Concomitant]
  3. PRILOSEC [Concomitant]
  4. ASPIRIN [Concomitant]
  5. PREDNISONE TAB [Concomitant]

REACTIONS (4)
  - DRY SKIN [None]
  - FATIGUE [None]
  - NAUSEA [None]
  - PRURITUS [None]
